FAERS Safety Report 6985198-3 (Version None)
Quarter: 2010Q3

REPORT INFORMATION
  Report Type: 
  Country: None (occurrence: None)
  Receive Date: 20100914
  Receipt Date: 20100914
  Transmission Date: 20110219
  Serious: No
  Sender: FDA-Public Use
  Company Number: None

PATIENT
  Age: 70 Year
  Sex: Male

DRUGS (8)
  1. METHIMAZOLE [Suspect]
     Dates: start: 20090126, end: 20090224
  2. PROPYLTHIOURACIL [Suspect]
     Dates: start: 20090120, end: 20090126
  3. HYDROXYZINE [Concomitant]
  4. ALLEGRA [Concomitant]
  5. PROPRANOLOL [Concomitant]
  6. QVAR 40 [Concomitant]
  7. COMBIVENT [Concomitant]
  8. NALTREXONE HYDROCHLORIDE [Concomitant]

REACTIONS (17)
  - ASTHENIA [None]
  - DECREASED APPETITE [None]
  - GASTROINTESTINAL HAEMORRHAGE [None]
  - HEPATIC FAILURE [None]
  - HEPATOTOXICITY [None]
  - HYPOTENSION [None]
  - INSOMNIA [None]
  - LIVER DISORDER [None]
  - MALAISE [None]
  - NERVOUSNESS [None]
  - PALPITATIONS [None]
  - PRURITUS [None]
  - RENAL FAILURE [None]
  - SEPSIS [None]
  - TEMPERATURE INTOLERANCE [None]
  - THROMBOCYTOPENIA [None]
  - WEIGHT DECREASED [None]
